FAERS Safety Report 5728995-4 (Version None)
Quarter: 2008Q2

REPORT INFORMATION
  Report Type: 
  Country: None (occurrence: None)
  Receive Date: 20080505
  Receipt Date: 20080505
  Transmission Date: 20081010
  Serious: Yes (Other)
  Sender: FDA-Public Use
  Company Number: None

PATIENT
  Sex: Male
  Weight: 98.8842 kg

DRUGS (2)
  1. LYRICA [Suspect]
     Indication: BLOOD CREATINE PHOSPHOKINASE INCREASED
     Dosage: 50MG TWICE DAILY ORAL
     Route: 048
     Dates: start: 20080207, end: 20080306
  2. LYRICA [Suspect]
     Indication: BLOOD CREATINE PHOSPHOKINASE MB
     Dosage: 50MG TWICE DAILY ORAL
     Route: 048
     Dates: start: 20080207, end: 20080306

REACTIONS (2)
  - BLOOD CREATINE PHOSPHOKINASE INCREASED [None]
  - BLOOD CREATINE PHOSPHOKINASE MB INCREASED [None]
